FAERS Safety Report 9550873 (Version 2)
Quarter: 2014Q2

REPORT INFORMATION
  Report Type: Spontaneous
  Country: US (occurrence: US)
  Receive Date: 20130924
  Receipt Date: 20140402
  Transmission Date: 20141212
  Serious: No
  Sender: FDA-Public Use
  Company Number: US-SANOFI-AVENTIS-2013SA040492

PATIENT
  Age: 54 Year
  Sex: Male
  Weight: 170 kg

DRUGS (5)
  1. AUBAGIO [Suspect]
     Indication: MULTIPLE SCLEROSIS
     Route: 048
     Dates: start: 20130101
  2. AMANTADINE [Concomitant]
     Indication: MULTIPLE SCLEROSIS
     Dates: start: 1993
  3. LIPITOR [Concomitant]
     Indication: BLOOD CHOLESTEROL
     Dates: start: 1997
  4. HYDROCHLOROTHIAZIDE [Concomitant]
     Indication: BLOOD PRESSURE
     Dosage: 12.5
     Dates: start: 2013
  5. BYSTOLIC [Concomitant]
     Indication: BLOOD PRESSURE
     Dates: start: 2013

REACTIONS (2)
  - Alopecia [Recovering/Resolving]
  - Hypertension [Recovered/Resolved]
